FAERS Safety Report 10516185 (Version 2)
Quarter: 2014Q4

REPORT INFORMATION
  Report Type: Spontaneous
  Country: US (occurrence: US)
  Receive Date: 20141014
  Receipt Date: 20141107
  Transmission Date: 20150528
  Serious: Yes (Hospitalization)
  Sender: FDA-Public Use
  Company Number: US-ELI_LILLY_AND_COMPANY-US201410003772

PATIENT
  Age: 54 Year
  Sex: Male
  Weight: 176 kg

DRUGS (2)
  1. HUMULIN 70/30 [Suspect]
     Active Substance: INSULIN HUMAN
     Indication: DIABETES MELLITUS
     Route: 065
  2. HUMALOG [Suspect]
     Active Substance: INSULIN LISPRO
     Indication: DIABETES MELLITUS
     Dosage: 80 U, SINGLE
     Route: 058
     Dates: start: 20140919

REACTIONS (3)
  - Wrong drug administered [Recovered/Resolved]
  - Product name confusion [Recovered/Resolved]
  - Blood glucose decreased [Recovered/Resolved]
